FAERS Safety Report 8839835 (Version 1)
Quarter: 2012Q4

REPORT INFORMATION
  Report Type: 
  Country: US (occurrence: US)
  Receive Date: 20121015
  Receipt Date: 20121015
  Transmission Date: 20130627
  Serious: No
  Sender: FDA-Public Use
  Company Number: US-BRISTOL-MYERS SQUIBB COMPANY-16600496

PATIENT
  Age: 41 Year
  Sex: Male
  Weight: 78 kg

DRUGS (1)
  1. KENALOG-40 [Suspect]
     Indication: SEASONAL ALLERGY
     Dosage: Lot # 1L63013 (1.5cc), 1E66047 (1cc), 0A64304 (1.5cc)

REACTIONS (3)
  - Injection site atrophy [Unknown]
  - Weight decreased [Unknown]
  - Weight increased [Unknown]
